FAERS Safety Report 5790481-3 (Version None)
Quarter: 2008Q2

REPORT INFORMATION
  Report Type: 
  Country: None (occurrence: None)
  Receive Date: 20080626
  Receipt Date: 20080429
  Transmission Date: 20081010
  Serious: No
  Sender: FDA-Public Use
  Company Number: A0725299A

PATIENT
  Age: 63 Year
  Sex: Female

DRUGS (3)
  1. ALLI [Suspect]
  2. NORTRIPTYLINE HCL [Concomitant]
  3. IMITREX [Concomitant]

REACTIONS (3)
  - ABNORMAL FAECES [None]
  - CONSTIPATION [None]
  - FAECES HARD [None]
